FAERS Safety Report 25664094 (Version 1)
Quarter: 2025Q3

REPORT INFORMATION
  Report Type: Report from Study
  Country: US (occurrence: US)
  Receive Date: 20250811
  Receipt Date: 20250811
  Transmission Date: 20251020
  Serious: Yes (Other)
  Sender: GILEAD
  Company Number: US-GILEAD-2025-0723803

PATIENT
  Sex: Female

DRUGS (1)
  1. AMBRISENTAN [Suspect]
     Active Substance: AMBRISENTAN
     Indication: HIV infection
     Dosage: 5 MG, QD
     Route: 048
     Dates: start: 20241025

REACTIONS (4)
  - Atrial fibrillation [Unknown]
  - Irritable bowel syndrome [Unknown]
  - Pain in extremity [Unknown]
  - Product use in unapproved indication [Not Recovered/Not Resolved]
